FAERS Safety Report 15763723 (Version 1)
Quarter: 2018Q4

REPORT INFORMATION
  Report Type: Spontaneous
  Country: GB (occurrence: GB)
  Receive Date: 20181227
  Receipt Date: 20181227
  Transmission Date: 20190205
  Serious: Yes (Other)
  Sender: FDA-Public Use
  Company Number: GB-ACCORD-098265

PATIENT
  Age: 57 Year
  Sex: Male
  Weight: 65.1 kg

DRUGS (2)
  1. ZUCLOPENTHIXOL [Concomitant]
     Active Substance: ZUCLOPENTHIXOL
  2. CLOZAPINE. [Suspect]
     Active Substance: CLOZAPINE
     Indication: SCHIZOPHRENIA
     Route: 048
     Dates: start: 20171214, end: 20180117

REACTIONS (3)
  - Allergic hepatitis [Recovering/Resolving]
  - Jaundice [Unknown]
  - Fatigue [Unknown]

NARRATIVE: CASE EVENT DATE: 20180117
